FAERS Safety Report 16205806 (Version 1)
Quarter: 2019Q2

REPORT INFORMATION
  Report Type: Report from Study
  Country: US (occurrence: US)
  Receive Date: 20190417
  Receipt Date: 20190417
  Transmission Date: 20190711
  Serious: Yes (Other)
  Sender: FDA-Public Use
  Company Number: US-ROCHE-2302161

PATIENT
  Age: 43 Year
  Sex: Female
  Weight: 83.99 kg

DRUGS (2)
  1. OCREVUS [Suspect]
     Active Substance: OCRELIZUMAB
     Indication: MULTIPLE SCLEROSIS
  2. OCREVUS [Suspect]
     Active Substance: OCRELIZUMAB
     Indication: RELAPSING-REMITTING MULTIPLE SCLEROSIS
     Dosage: ONGOING: NO
     Route: 042
     Dates: start: 201804, end: 201810

REACTIONS (10)
  - Chest pain [Not Recovered/Not Resolved]
  - Rash [Recovering/Resolving]
  - Speech disorder [Recovered/Resolved]
  - Oropharyngeal pain [Not Recovered/Not Resolved]
  - Anaphylactic reaction [Recovered/Resolved]
  - Throat tightness [Recovering/Resolving]
  - Cardiac flutter [Not Recovered/Not Resolved]
  - Choking [Recovered/Resolved]
  - Skin discolouration [Recovered/Resolved]
  - Palpitations [Not Recovered/Not Resolved]

NARRATIVE: CASE EVENT DATE: 201804
